FAERS Safety Report 4423578-0 (Version None)
Quarter: 2004Q3

REPORT INFORMATION
  Report Type: 
  Country: None (occurrence: None)
  Receive Date: 20040805
  Receipt Date: 20040721
  Transmission Date: 20050211
  Serious: Yes (Hospitalization)
  Sender: FDA-Public Use
  Company Number: 04P-087-0266800-00

PATIENT
  Age: 47 Year
  Sex: Male

DRUGS (15)
  1. KALETRA [Suspect]
     Indication: HIV INFECTION
     Dosage: 6 DOSAGE FORMS, 1 IN 1 D, PER ORAL
     Route: 048
     Dates: start: 20031028
  2. 3TC (LAMIVUDINE) [Suspect]
     Indication: HIV INFECTION
     Dosage: 300 MG, 1 IN 1 D, PER ORAL
     Route: 048
     Dates: start: 20031022, end: 20031023
  3. 3TC (LAMIVUDINE) [Suspect]
     Indication: HIV INFECTION
     Dosage: 300 MG, 1 IN 1 D, PER ORAL
     Route: 048
     Dates: start: 20031024, end: 20031027
  4. 3TC (LAMIVUDINE) [Suspect]
     Indication: HIV INFECTION
     Dosage: 300 MG, 1 IN 1 D, PER ORAL
     Route: 048
     Dates: start: 20031028
  5. NORVIR [Suspect]
     Indication: HIV INFECTION
     Dosage: 200 MG, 1 IN 1 D, PER ORAL
     Route: 048
     Dates: start: 20031022, end: 20031028
  6. D4T (STAVUDINE) [Suspect]
     Indication: HIV INFECTION
     Dosage: 40 MG, 1 IN 1 D, PER ORAL
     Route: 048
     Dates: start: 20031028
  7. ZIDOVUDINE [Concomitant]
  8. CLARITHROMYCIN [Concomitant]
  9. INDINAVIR [Concomitant]
  10. GANCICLOVIR [Concomitant]
  11. LEVOFLOXACIN [Concomitant]
  12. CEFOZOPRAN [Concomitant]
  13. MICAFUNGIN [Concomitant]
  14. MINOCYCLINE HCL [Concomitant]
  15. BACTRIM [Concomitant]

REACTIONS (8)
  - ATYPICAL MYCOBACTERIAL INFECTION [None]
  - DISORIENTATION [None]
  - DISTURBANCE IN ATTENTION [None]
  - DRUG INEFFECTIVE [None]
  - IMMUNE RECONSTITUTION SYNDROME [None]
  - PLEURAL EFFUSION [None]
  - PNEUMONIA PRIMARY ATYPICAL [None]
  - PYREXIA [None]
